FAERS Safety Report 20043693 (Version 5)
Quarter: 2023Q1

REPORT INFORMATION
  Report Type: Spontaneous
  Country: BR (occurrence: BR)
  Receive Date: 20211108
  Receipt Date: 20230123
  Transmission Date: 20230418
  Serious: Yes (Hospitalization, Other)
  Sender: FDA-Public Use
  Company Number: BR-GLAXOSMITHKLINE-BR2018GSK198652

PATIENT

DRUGS (5)
  1. BENLYSTA [Suspect]
     Active Substance: BELIMUMAB
     Indication: Systemic lupus erythematosus
     Dosage: 740 MG
     Route: 042
     Dates: start: 20180321
  2. BENLYSTA [Suspect]
     Active Substance: BELIMUMAB
     Dosage: 650 MG
     Route: 042
     Dates: start: 20180321, end: 202105
  3. BENLYSTA [Suspect]
     Active Substance: BELIMUMAB
     Dosage: 640 MG, Z
     Route: 042
     Dates: start: 20180321
  4. AZATHIOPRINE [Suspect]
     Active Substance: AZATHIOPRINE
     Indication: Product used for unknown indication
     Dosage: UNK
  5. HYDROXYCHLOROQUINE [Suspect]
     Active Substance: HYDROXYCHLOROQUINE
     Indication: Product used for unknown indication
     Dosage: UNK

REACTIONS (17)
  - Appendicitis [Recovered/Resolved]
  - Renal impairment [Not Recovered/Not Resolved]
  - Systemic lupus erythematosus [Not Recovered/Not Resolved]
  - Infarction [Unknown]
  - Chest pain [Unknown]
  - Condition aggravated [Not Recovered/Not Resolved]
  - Fall [Recovered/Resolved]
  - Contusion [Recovered/Resolved]
  - Malaise [Recovered/Resolved]
  - Urinary tract infection [Recovered/Resolved]
  - Weight increased [Recovered/Resolved]
  - Skin lesion [Not Recovered/Not Resolved]
  - Product dose omission issue [Recovered/Resolved]
  - Inappropriate schedule of product administration [Not Recovered/Not Resolved]
  - Underdose [Unknown]
  - Product availability issue [Unknown]
  - Social problem [Unknown]

NARRATIVE: CASE EVENT DATE: 20210101
